FAERS Safety Report 19526058 (Version 1)
Quarter: 2021Q3

REPORT INFORMATION
  Report Type: Spontaneous
  Country: US (occurrence: US)
  Receive Date: 20210713
  Receipt Date: 20210713
  Transmission Date: 20211014
  Serious: Yes (Other)
  Sender: FDA-Public Use
  Company Number: None

PATIENT
  Age: 61 Year
  Sex: Female

DRUGS (12)
  1. MORPHINE SULFATE ER [Concomitant]
     Active Substance: MORPHINE SULFATE
  2. DULOXETINE. [Concomitant]
     Active Substance: DULOXETINE
  3. CALCIUM [Concomitant]
     Active Substance: CALCIUM
  4. METHOCARBAMOL. [Concomitant]
     Active Substance: METHOCARBAMOL
  5. ADVIL [Concomitant]
     Active Substance: IBUPROFEN
  6. VITAMIN D [Concomitant]
     Active Substance: VITAMIN D NOS
  7. GABAPENTIN. [Concomitant]
     Active Substance: GABAPENTIN
  8. CETIRIZINE [Concomitant]
     Active Substance: CETIRIZINE HYDROCHLORIDE
  9. CAPECITABINE 500 MG [Suspect]
     Active Substance: CAPECITABINE
     Indication: BREAST CANCER FEMALE
     Dosage: 1500MG BID PO FROM DAY 1?14, REST X 14
     Route: 048
     Dates: start: 202004
  10. LORAZEPAM. [Concomitant]
     Active Substance: LORAZEPAM
  11. SENAKOT [Concomitant]
  12. OXYCODONE IMMEDIATE RELEASE [Concomitant]
     Active Substance: OXYCODONE

REACTIONS (3)
  - Stomatitis [None]
  - Palmar-plantar erythrodysaesthesia syndrome [None]
  - Neuropathy peripheral [None]

NARRATIVE: CASE EVENT DATE: 20210628
